FAERS Safety Report 9781024 (Version 1)
Quarter: 2013Q4

REPORT INFORMATION
  Report Type: Spontaneous
  Country: FR (occurrence: FR)
  Receive Date: 20131224
  Receipt Date: 20131224
  Transmission Date: 20140711
  Serious: Yes (Hospitalization)
  Sender: FDA-Public Use
  Company Number: FR-JNJFOC-20131212809

PATIENT
  Age: 94 Year
  Sex: Female

DRUGS (5)
  1. XARELTO [Suspect]
     Indication: CEREBROVASCULAR ACCIDENT PROPHYLAXIS
     Route: 048
     Dates: start: 20130712, end: 20131011
  2. XARELTO [Suspect]
     Indication: ATRIAL FIBRILLATION
     Route: 048
     Dates: start: 20130712, end: 20131011
  3. LASILIX [Concomitant]
     Indication: HYPERTENSION
     Route: 048
  4. AMIODARONE [Concomitant]
     Route: 048
  5. SERETIDE [Concomitant]
     Route: 055

REACTIONS (2)
  - Anaemia [Recovered/Resolved]
  - Cardiac failure [Recovered/Resolved]
